FAERS Safety Report 10335369 (Version 1)
Quarter: 2014Q3

REPORT INFORMATION
  Report Type: Spontaneous
  Country: IT (occurrence: None)
  Receive Date: 20140721
  Receipt Date: 20140721
  Transmission Date: 20150326
  Serious: Yes (Other)
  Sender: FDA-Public Use
  Company Number: AUR-APL-2014-07659

PATIENT
  Age: 65 Year
  Sex: Female

DRUGS (6)
  1. CARDIRENE (ACETYLSALICYLATE LYSINE) [Concomitant]
  2. DERMATRANS /00003201/ (GLYCERYL TRINITRATE) [Concomitant]
  3. AMLODIPINE [Concomitant]
     Active Substance: AMLODIPINE BESYLATE
  4. LEVOFLOXACIN [Suspect]
     Active Substance: LEVOFLOXACIN
     Indication: PYREXIA
     Route: 048
     Dates: start: 20130614, end: 20130626
  5. HUMALOG [Concomitant]
     Active Substance: INSULIN LISPRO
  6. PANTOPRAZOLE [Concomitant]
     Active Substance: PANTOPRAZOLE SODIUM

REACTIONS (4)
  - Drug ineffective [None]
  - Pyrexia [None]
  - Off label use [None]
  - Oedema peripheral [None]

NARRATIVE: CASE EVENT DATE: 20130614
